FAERS Safety Report 5720931-X (Version None)
Quarter: 2008Q2

REPORT INFORMATION
  Report Type: 
  Country: None (occurrence: None)
  Receive Date: 20080423
  Receipt Date: 20080115
  Transmission Date: 20081010
  Serious: Yes (Life-Threatening, Hospitalization)
  Sender: FDA-Public Use
  Company Number: 253690

PATIENT
  Age: 57 Year
  Sex: Female

DRUGS (11)
  1. AVASTIN [Suspect]
     Indication: COLORECTAL CANCER METASTATIC
     Dosage: 470 MG, Q2W, INTRAVENOUS
     Route: 042
     Dates: start: 20061010
  2. LEUCOVORIN CALCIUM [Concomitant]
  3. FLUOROURACIL [Concomitant]
  4. IRINOTECAN HCL [Concomitant]
  5. ALBUTEROL (ALBUTEROL/ALBUTEROL SULFATE) [Concomitant]
  6. CLARITIN [Concomitant]
  7. FLONASE [Concomitant]
  8. FLOVENT [Concomitant]
  9. LISINOPRIL [Concomitant]
  10. PLAQUENIL [Concomitant]
  11. PRILOSEC [Concomitant]

REACTIONS (1)
  - MYOCARDIAL INFARCTION [None]
